FAERS Safety Report 21408372 (Version 1)
Quarter: 2022Q4

REPORT INFORMATION
  Report Type: Report from Study
  Country: CA (occurrence: CA)
  Receive Date: 20221004
  Receipt Date: 20221004
  Transmission Date: 20230112
  Serious: Yes (Other)
  Sender: FDA-Public Use
  Company Number: CA-ABBVIE-4135209

PATIENT
  Sex: Male

DRUGS (1)
  1. HUMIRA [Suspect]
     Active Substance: ADALIMUMAB
     Indication: Crohn^s disease
     Route: 058
     Dates: start: 20080917

REACTIONS (5)
  - Intestinal obstruction [Unknown]
  - Intestinal operation [Unknown]
  - Post procedural complication [Unknown]
  - Postoperative adhesion [Unknown]
  - Intestinal stenosis [Unknown]
